FAERS Safety Report 12906949 (Version 1)
Quarter: 2016Q4

REPORT INFORMATION
  Report Type: Spontaneous
  Country: FR (occurrence: FR)
  Receive Date: 20161103
  Receipt Date: 20161103
  Transmission Date: 20170207
  Serious: Yes (Life-Threatening)
  Sender: FDA-Public Use
  Company Number: FR-PFIZER INC-2016500360

PATIENT
  Age: 69 Year
  Sex: Female

DRUGS (24)
  1. NATISPRAY [Concomitant]
     Active Substance: NITROGLYCERIN
  2. TIORFAN [Concomitant]
     Active Substance: RACECADOTRIL
  3. ZOPHREN /00955301/ [Concomitant]
     Active Substance: ONDANSETRON
  4. ADALAT [Suspect]
     Active Substance: NIFEDIPINE
     Indication: RAYNAUD^S PHENOMENON
     Dosage: 20 MG, 2X/DAY
     Route: 048
     Dates: start: 20151102, end: 20151123
  5. LASILIX /00032601/ [Concomitant]
     Active Substance: FUROSEMIDE
  6. ACTISKENAN [Concomitant]
     Active Substance: MORPHINE SULFATE
  7. SOVALDI [Suspect]
     Active Substance: SOFOSBUVIR
     Indication: HEPATITIS C
     Dosage: UNK
     Route: 048
     Dates: start: 20140715, end: 20150115
  8. TARDYFERON [Concomitant]
     Active Substance: FERROUS SULFATE
  9. INEGY [Concomitant]
     Active Substance: EZETIMIBE\SIMVASTATIN
  10. ILARIS [Concomitant]
     Active Substance: CANAKINUMAB
  11. TEMERIT [Suspect]
     Active Substance: NEBIVOLOL
     Indication: PALPITATIONS
     Dosage: 5 MG, 2X/DAY
     Route: 048
     Dates: end: 20151123
  12. INEXIUM /01479302/ [Concomitant]
     Active Substance: ESOMEPRAZOLE MAGNESIUM
  13. ADENURIC [Concomitant]
     Active Substance: FEBUXOSTAT
  14. GAVISCON /01405501/ [Concomitant]
     Active Substance: SODIUM ALGINATE\SODIUM BICARBONATE
  15. LOPERAMIDE HYDROCHLORIDE. [Concomitant]
     Active Substance: LOPERAMIDE HYDROCHLORIDE
  16. ALPRAZOLAM. [Concomitant]
     Active Substance: ALPRAZOLAM
  17. DAKLINZA [Suspect]
     Active Substance: DACLATASVIR
     Indication: HEPATITIS C
     Dosage: UNK
     Route: 048
     Dates: start: 20140715, end: 20150115
  18. RAMIPRIL. [Suspect]
     Active Substance: RAMIPRIL
     Indication: HYPERTENSION
     Dosage: 5 MG, 2X/DAY
     Route: 048
     Dates: end: 20151126
  19. LANTUS [Concomitant]
     Active Substance: INSULIN GLARGINE
  20. CALCIPARINE [Concomitant]
     Active Substance: HEPARIN CALCIUM
  21. DOXYCYCLINE. [Concomitant]
     Active Substance: DOXYCYCLINE
  22. ALDACTONE [Suspect]
     Active Substance: SPIRONOLACTONE
     Indication: HYPERTENSION
     Dosage: 75 MG, 3X/DAY
     Route: 048
     Dates: end: 20151126
  23. KALEORID [Concomitant]
     Active Substance: POTASSIUM CHLORIDE
  24. DUROGESIC [Concomitant]
     Active Substance: FENTANYL

REACTIONS (3)
  - Cardiac failure [Recovered/Resolved]
  - Bradycardia [Recovered/Resolved]
  - Hypotension [Recovered/Resolved]

NARRATIVE: CASE EVENT DATE: 20151124
